FAERS Safety Report 5301582-8 (Version None)
Quarter: 2007Q2

REPORT INFORMATION
  Report Type: 
  Country: None (occurrence: None)
  Receive Date: 20070412
  Receipt Date: 20070327
  Transmission Date: 20071010
  Serious: Yes (Hospitalization)
  Sender: FDA-Public Use
  Company Number: DSA_29716_2007

PATIENT
  Sex: Male

DRUGS (6)
  1. DILTIAZEM [Suspect]
     Indication: ANGINA PECTORIS
     Dosage: 60 MG TID PO
     Route: 048
  2. BISOPRODOL FUMARATE [Concomitant]
  3. GLICLAZIDE [Concomitant]
  4. METFORMIN [Concomitant]
  5. RAMIPRIL [Concomitant]
  6. WARFARIN [Concomitant]

REACTIONS (3)
  - FACE OEDEMA [None]
  - MOUTH ULCERATION [None]
  - RASH ERYTHEMATOUS [None]
